FAERS Safety Report 7318395-8 (Version None)
Quarter: 2011Q1

REPORT INFORMATION
  Report Type: 
  Country: None (occurrence: None)
  Receive Date: 20110218
  Receipt Date: 20110218
  Transmission Date: 20110831
  Serious: Yes (Hospitalization)
  Sender: FDA-Public Use
  Company Number: None

PATIENT
  Sex: Male
  Weight: 76.8 kg

DRUGS (7)
  1. BACTRIM [Concomitant]
  2. METHOTREXATE [Suspect]
  3. ACYCLOVIR [Concomitant]
  4. VICODIN [Concomitant]
  5. LORAZEPAM [Concomitant]
  6. LEXAPRO [Concomitant]
  7. LISINOPRIL [Concomitant]

REACTIONS (4)
  - APHASIA [None]
  - HEADACHE [None]
  - THINKING ABNORMAL [None]
  - MUSCULOSKELETAL STIFFNESS [None]
